FAERS Safety Report 10534526 (Version 2)
Quarter: 2014Q4

REPORT INFORMATION
  Report Type: Spontaneous
  Country: CA (occurrence: CA)
  Receive Date: 20141022
  Receipt Date: 20141022
  Transmission Date: 20150529
  Serious: Yes (Hospitalization)
  Sender: FDA-Public Use
  Company Number: CA-GLAXOSMITHKLINE-A1031444A

PATIENT
  Age: 90 Year
  Sex: Female

DRUGS (2)
  1. REVOLADE [Suspect]
     Active Substance: ELTROMBOPAG
     Dosage: UNK UNK, QD
  2. REVOLADE [Suspect]
     Active Substance: ELTROMBOPAG
     Indication: IMMUNE THROMBOCYTOPENIC PURPURA
     Dosage: 50 MG, U
     Route: 065

REACTIONS (10)
  - Post procedural infection [Unknown]
  - Pain [Unknown]
  - Memory impairment [Unknown]
  - Arthralgia [Unknown]
  - Sleep disorder [Unknown]
  - Balance disorder [Unknown]
  - Platelet disorder [Unknown]
  - Decreased appetite [Unknown]
  - Insomnia [Unknown]
  - Cyst removal [Recovered/Resolved]

NARRATIVE: CASE EVENT DATE: 20130525
